FAERS Safety Report 22192039 (Version 2)
Quarter: 2023Q2

REPORT INFORMATION
  Report Type: Spontaneous
  Country: FR (occurrence: FR)
  Receive Date: 20230410
  Receipt Date: 20230605
  Transmission Date: 20230721
  Serious: Yes (Death, Other)
  Sender: FDA-Public Use
  Company Number: FR-ELI_LILLY_AND_COMPANY-FR202304002803

PATIENT
  Age: 66 Year
  Sex: Female
  Weight: 52 kg

DRUGS (10)
  1. ABEMACICLIB [Suspect]
     Active Substance: ABEMACICLIB
     Indication: Metastases to meninges
     Dosage: 150 MG, BID
     Route: 048
     Dates: start: 20230223, end: 20230320
  2. ABEMACICLIB [Suspect]
     Active Substance: ABEMACICLIB
     Indication: Breast cancer metastatic
  3. LETROZOLE [Concomitant]
     Active Substance: LETROZOLE
     Indication: Breast cancer metastatic
     Dosage: 2.5 MG, DAILY
     Route: 048
     Dates: start: 20230223, end: 20230320
  4. LETROZOLE [Concomitant]
     Active Substance: LETROZOLE
     Indication: Metastases to meninges
  5. ACEBUTOLOL [Concomitant]
     Active Substance: ACEBUTOLOL
     Indication: Product used for unknown indication
     Dosage: 400 MG, (? DF MORNING AND EVENING)
     Route: 048
     Dates: end: 20230320
  6. KARDEGIC [Concomitant]
     Active Substance: ASPIRIN DL-LYSINE
     Indication: Product used for unknown indication
     Dosage: 160 MG, MIDDAY
     Route: 048
     Dates: end: 20230320
  7. BROMAZEPAM [Concomitant]
     Active Substance: BROMAZEPAM
     Indication: Product used for unknown indication
     Dosage: 1.5 MG, EACH EVENING
     Route: 048
     Dates: end: 20230320
  8. OMEPRAZOLE [Concomitant]
     Active Substance: OMEPRAZOLE
     Indication: Product used for unknown indication
     Dosage: 20 MG, EACH EVENING
     Route: 048
     Dates: end: 20230320
  9. HYDROCHLOROTHIAZIDE\LOSARTAN POTASSIUM [Concomitant]
     Active Substance: HYDROCHLOROTHIAZIDE\LOSARTAN POTASSIUM
     Indication: Product used for unknown indication
     Dosage: 100 MG, EACH MORNING
     Route: 048
     Dates: end: 20230320
  10. LEVOFLOXACIN [Concomitant]
     Active Substance: LEVOFLOXACIN
     Indication: Product used for unknown indication
     Dosage: 750 MG, DAILY
     Route: 048
     Dates: start: 20230118, end: 20230301

REACTIONS (4)
  - Death [Fatal]
  - Gastrointestinal perforation [Not Recovered/Not Resolved]
  - Malignant neoplasm progression [Unknown]
  - Diarrhoea [Unknown]

NARRATIVE: CASE EVENT DATE: 20230316
